FAERS Safety Report 16029464 (Version 1)
Quarter: 2019Q1

REPORT INFORMATION
  Report Type: Spontaneous
  Country: US (occurrence: US)
  Receive Date: 20190304
  Receipt Date: 20190304
  Transmission Date: 20190418
  Serious: No
  Sender: FDA-Public Use
  Company Number: US-SA-2019SA059553

PATIENT
  Sex: Female
  Weight: 61.23 kg

DRUGS (6)
  1. CALCIUM ACETATE. [Concomitant]
     Active Substance: CALCIUM ACETATE
  2. ESTRACE [Concomitant]
     Active Substance: ESTRADIOL
     Dosage: 1 MG, TABLET DAILY
  3. DUPIXENT [Suspect]
     Active Substance: DUPILUMAB
     Indication: DERMATITIS ATOPIC
     Dosage: 300 MG, QOW
     Route: 058
     Dates: start: 201802
  4. PROGESTERONE ABBOTT [Concomitant]
  5. VITAMIN B12 [Concomitant]
     Active Substance: CYANOCOBALAMIN
     Dosage: 1000MCG/ML KIT
  6. COLLAGEN [Concomitant]
     Active Substance: COLLAGEN

REACTIONS (5)
  - Nasopharyngitis [Unknown]
  - Cough [Unknown]
  - Dyspnoea [Unknown]
  - Lacrimation increased [Unknown]
  - Dry eye [Unknown]
